FAERS Safety Report 6112287-8 (Version None)
Quarter: 2009Q1

REPORT INFORMATION
  Report Type: 
  Country: None (occurrence: None)
  Receive Date: 20090312
  Receipt Date: 20090302
  Transmission Date: 20090719
  Serious: Yes (Hospitalization)
  Sender: FDA-Public Use
  Company Number: DE-RANBAXY-2009RR-22338

PATIENT
  Age: 86 Year
  Sex: Male
  Weight: 65 kg

DRUGS (9)
  1. ENALAPRIL [Suspect]
     Indication: HYPERTENSION
     Dosage: 5 MG, BID
     Route: 048
     Dates: start: 20080401, end: 20080729
  2. ENALAPRIL [Suspect]
     Dosage: 2.5 MG, QD
     Route: 048
     Dates: start: 20080820
  3. AMLODIPINE [Suspect]
     Indication: HYPERTENSION
     Dosage: 5 MG, QD
     Route: 048
     Dates: start: 20070101, end: 20080727
  4. BISOPROLOL [Suspect]
     Indication: HYPERTENSION
     Dosage: 2.5 MG, QD
     Route: 048
     Dates: start: 20070101, end: 20070727
  5. LEVOFLOXACIN [Suspect]
     Indication: URINARY TRACT INFECTION
     Dosage: 250 MG, QD
     Route: 048
     Dates: start: 20080721, end: 20080803
  6. XIPAMIDE [Suspect]
     Indication: CARDIAC FAILURE
     Dosage: 20 MG, QD
     Route: 048
     Dates: start: 20080401, end: 20080727
  7. ASPIRIN [Concomitant]
     Indication: CORONARY ARTERY DISEASE
     Dosage: 300 MG, QD
     Route: 048
     Dates: start: 20070101
  8. CETIRIZINE [Concomitant]
     Dosage: 10 MG, QD
     Route: 048
     Dates: end: 20080727
  9. NOVALGIN [Concomitant]
     Indication: PAIN
     Dosage: 30 GTT, TID
     Route: 048
     Dates: start: 20080401

REACTIONS (1)
  - RENAL FAILURE ACUTE [None]
